FAERS Safety Report 14563227 (Version 2)
Quarter: 2018Q1

REPORT INFORMATION
  Report Type: Report from Study
  Country: US (occurrence: US)
  Receive Date: 20180222
  Receipt Date: 20180226
  Transmission Date: 20180509
  Serious: Yes (Hospitalization)
  Sender: FDA-Public Use
  Company Number: US-ASTRAZENECA-2018SE22665

PATIENT
  Age: 762 Month
  Sex: Male
  Weight: 128.5 kg

DRUGS (21)
  1. DURVALUMAB. [Suspect]
     Active Substance: DURVALUMAB
     Indication: NON-SMALL CELL LUNG CANCER
     Route: 042
     Dates: start: 20171213
  2. PRAMOXINE [Concomitant]
     Active Substance: PRAMOXINE
     Indication: RASH PRURITIC
     Dosage: 1 APP PRN
     Route: 061
     Dates: start: 20171018
  3. ATORVASTATIN [Concomitant]
     Active Substance: ATORVASTATIN
     Indication: HYPERLIPIDAEMIA
     Route: 048
     Dates: start: 2002
  4. GABAPENTIN. [Concomitant]
     Active Substance: GABAPENTIN
     Indication: DIABETIC NEUROPATHY
     Dosage: 300 MG QHS
     Route: 048
     Dates: start: 201510
  5. METOCLOPRAMIDE. [Concomitant]
     Active Substance: METOCLOPRAMIDE
     Indication: PROPHYLAXIS OF NAUSEA AND VOMITING
     Dosage: 10.0MG AS REQUIRED
     Route: 048
     Dates: start: 20170705
  6. INSULIN GLARGINE [Concomitant]
     Active Substance: INSULIN GLARGINE
     Indication: DIABETES MELLITUS
     Dosage: 35 UNITS
     Route: 048
     Dates: start: 201302
  7. OMEGA-3 POLYUNSATURATED FATTY ACID [Concomitant]
     Indication: ROUTINE HEALTH MAINTENANCE
     Route: 048
     Dates: start: 2002
  8. LOPERAMIDE [Concomitant]
     Active Substance: LOPERAMIDE
     Indication: PROPHYLAXIS AGAINST DIARRHOEA
     Dosage: 2.0DF AS REQUIRED
     Route: 048
     Dates: start: 20171206
  9. LOSARTAN. [Concomitant]
     Active Substance: LOSARTAN
     Indication: HYPERTENSION
     Route: 048
     Dates: start: 2007
  10. MOCETINOSTAT [Suspect]
     Active Substance: MOCETINOSTAT
     Indication: NON-SMALL CELL LUNG CANCER
     Route: 048
     Dates: start: 20171213
  11. ASPIRIN. [Concomitant]
     Active Substance: ASPIRIN
     Indication: HYPERTENSION
     Route: 048
     Dates: start: 2007
  12. EMPAGLIFLOZIN [Concomitant]
     Active Substance: EMPAGLIFLOZIN
     Indication: DIABETES MELLITUS
     Dosage: 25 MG
     Route: 048
     Dates: start: 2012
  13. LIRAGLUTIDE [Concomitant]
     Active Substance: LIRAGLUTIDE
     Indication: DIABETES MELLITUS
     Route: 048
     Dates: start: 201611
  14. TAMSULOSIN [Concomitant]
     Active Substance: TAMSULOSIN
     Indication: BENIGN PROSTATIC HYPERPLASIA
     Dosage: 0.8 MG QHS
     Route: 048
     Dates: start: 201705
  15. AMLODIPINE [Concomitant]
     Active Substance: AMLODIPINE BESYLATE
     Indication: HYPERTENSION
     Route: 048
     Dates: start: 2007
  16. METFORMIN [Concomitant]
     Active Substance: METFORMIN HYDROCHLORIDE
     Indication: DIABETES MELLITUS
     Route: 048
     Dates: start: 2002
  17. MOCETINOSTAT [Suspect]
     Active Substance: MOCETINOSTAT
     Indication: NON-SMALL CELL LUNG CANCER
     Dosage: LEAD IN PERIOID
     Route: 048
     Dates: start: 20171206
  18. CALCIUM CARBONATE. [Concomitant]
     Active Substance: CALCIUM CARBONATE
     Indication: GASTROOESOPHAGEAL REFLUX DISEASE
     Dosage: 2.0DF AS REQUIRED
     Route: 048
     Dates: start: 2002
  19. TRAVOPROST. [Concomitant]
     Active Substance: TRAVOPROST
     Dosage: 1 DROP QHS
     Route: 047
     Dates: start: 201209
  20. TRIAMCINOLONE [Concomitant]
     Active Substance: TRIAMCINOLONE
     Indication: RASH PRURITIC
     Dosage: 1 APP TID
     Route: 061
     Dates: start: 20171018
  21. MULTIVITAMIN [Concomitant]
     Active Substance: VITAMINS
     Indication: ROUTINE HEALTH MAINTENANCE
     Dosage: QD
     Route: 048
     Dates: start: 2002

REACTIONS (2)
  - Pericarditis [Recovered/Resolved]
  - Pericardial effusion [Recovered/Resolved]

NARRATIVE: CASE EVENT DATE: 20180219
